FAERS Safety Report 22940552 (Version 4)
Quarter: 2024Q1

REPORT INFORMATION
  Report Type: Spontaneous
  Country: FR (occurrence: FR)
  Receive Date: 20230913
  Receipt Date: 20240329
  Transmission Date: 20240410
  Serious: Yes (Hospitalization, Other)
  Sender: FDA-Public Use
  Company Number: None

PATIENT
  Age: 61 Year
  Sex: Male

DRUGS (36)
  1. CASPOFUNGIN ACETATE [Suspect]
     Active Substance: CASPOFUNGIN ACETATE
     Indication: Product used for unknown indication
     Dosage: UNK
     Route: 065
     Dates: start: 20230309, end: 20230313
  2. VALGANCICLOVIR HYDROCHLORIDE [Suspect]
     Active Substance: VALGANCICLOVIR HYDROCHLORIDE
     Indication: Antiviral prophylaxis
     Dosage: 450 MG (ON BREAK)
     Dates: start: 202304, end: 20230629
  3. METHYLPREDNISOLONE [Suspect]
     Active Substance: METHYLPREDNISOLONE
     Indication: Product used for unknown indication
     Dosage: UNK
     Route: 065
     Dates: start: 20230309, end: 20230313
  4. PROGRAF [Suspect]
     Active Substance: TACROLIMUS
     Indication: Lung transplant rejection
     Dosage: 3 MG, BID (MORNING AND EVENING)
     Route: 065
     Dates: start: 202304
  5. CALCIUM CARBONATE [Suspect]
     Active Substance: CALCIUM CARBONATE
     Dosage: 500MG/400UI: 1 SACHET IN THE MORNING
  6. CELLCEPT [Suspect]
     Active Substance: MYCOPHENOLATE MOFETIL
     Indication: Lung transplant rejection
     Dosage: 1 DOSAGE FORM, BID (MORNING AND EVENING)
     Route: 065
     Dates: start: 202304, end: 202306
  7. CERTICAN [Suspect]
     Active Substance: EVEROLIMUS
     Indication: Lung transplant rejection
     Dosage: 1.5 MG, BID (MORNING AND EVENING)
     Route: 065
     Dates: start: 20230415
  8. CERTICAN [Suspect]
     Active Substance: EVEROLIMUS
     Dosage: 1 MG, BID (MORNING AND EVENING)
     Route: 065
     Dates: start: 202304
  9. ELIQUIS [Suspect]
     Active Substance: APIXABAN
     Indication: Product used for unknown indication
     Dosage: 1 DF, BID(MORNING AND EVENING)
  10. CYCLOSPORINE [Suspect]
     Active Substance: CYCLOSPORINE
     Indication: Product used for unknown indication
     Dosage: UNK
     Dates: start: 20230309, end: 20230313
  11. AMOXICILLIN\CLAVULANATE POTASSIUM [Suspect]
     Active Substance: AMOXICILLIN\CLAVULANATE POTASSIUM
     Dosage: UNK
     Dates: start: 20230309, end: 20230313
  12. PANTOPRAZOLE [Suspect]
     Active Substance: PANTOPRAZOLE
     Indication: Product used for unknown indication
     Dosage: 20 MILLIGRAM, QD
     Route: 048
  13. MAGNESIUM CARBONATE [Suspect]
     Active Substance: MAGNESIUM CARBONATE
     Dosage: 2 DOSAGE FORM, QD(2 SACHETS IN THE MORNING)
  14. CRESTOR [Suspect]
     Active Substance: ROSUVASTATIN CALCIUM
     Indication: Product used for unknown indication
     Dosage: 10 MG, QD(IN THE EVENING)
     Route: 048
  15. CRESTOR [Suspect]
     Active Substance: ROSUVASTATIN CALCIUM
     Dosage: (10 MG, QD,IN THE EVENING)
     Route: 065
  16. ZIEXTENZO [Suspect]
     Active Substance: PEGFILGRASTIM-BMEZ
     Dosage: UNK, EVERY 6 WEEKS
     Dates: start: 20230527
  17. GANCICLOVIR [Suspect]
     Active Substance: GANCICLOVIR
     Indication: Product used for unknown indication
     Dosage: UNK
     Route: 065
     Dates: start: 20230309, end: 20230313
  18. OLODATEROL HYDROCHLORIDE\TIOTROPIUM BROMIDE MONOHYDRATE [Suspect]
     Active Substance: OLODATEROL HYDROCHLORIDE\TIOTROPIUM BROMIDE MONOHYDRATE
     Indication: Product used for unknown indication
     Dosage: 2 PUFFS/D
  19. PREDNISONE [Suspect]
     Active Substance: PREDNISONE
     Indication: Lung transplant rejection
     Dosage: 7.5 MG, WHEN (FOR 15 DAYS)
  20. PREDNISONE [Suspect]
     Active Substance: PREDNISONE
     Dosage: 5 MG, WHEN(FOR 15 DAYS)
  21. PREDNISONE [Suspect]
     Active Substance: PREDNISONE
     Dosage: 12.5 MG, WHEN (FOR 15 DAYS)
  22. PREDNISONE [Suspect]
     Active Substance: PREDNISONE
     Dosage: 10 MG, WHEN(FOR 15 DAYS)
  23. PREDNISONE [Suspect]
     Active Substance: PREDNISONE
     Dosage: 25 MILLIGRAM, QD
     Dates: start: 202304
  24. LEUCOVORIN CALCIUM [Suspect]
     Active Substance: LEUCOVORIN CALCIUM
     Indication: Product used for unknown indication
     Dosage: 5 MG,MONDAY, WEDNESDAY,FRIDAY
     Route: 048
  25. LANSOPRAZOLE [Suspect]
     Active Substance: LANSOPRAZOLE
     Indication: Product used for unknown indication
     Dosage: 1 DOSAGE FORM, WHEN (IN EVENING)
     Route: 065
  26. SIMULECT [Suspect]
     Active Substance: BASILIXIMAB
     Dosage: UNK
     Dates: start: 20230309, end: 20230313
  27. PENTACARINAT [Suspect]
     Active Substance: PENTAMIDINE ISETHIONATE
     Dosage: 300 MILLIGRAM, QM
  28. SOTALOL [Suspect]
     Active Substance: SOTALOL
     Dosage: 0.5 DOSAGE FORM, BID (1/2 TABLET MORNING AND EVENING)
     Route: 048
  29. TACROLIMUS [Suspect]
     Active Substance: TACROLIMUS
  30. AMOXICILLIN\CLAVULANIC ACID [Suspect]
     Active Substance: AMOXICILLIN\CLAVULANIC ACID
  31. ROSUVASTATIN [Suspect]
     Active Substance: ROSUVASTATIN
  32. MAGNESIUM OXIDE [Suspect]
     Active Substance: MAGNESIUM OXIDE
  33. PEGFILGRASTIM [Suspect]
     Active Substance: PEGFILGRASTIM
  34. APIXABAN [Suspect]
     Active Substance: APIXABAN
  35. PREDNISONE [Suspect]
     Active Substance: PREDNISONE
  36. VITAMIN D3 [Suspect]
     Active Substance: CHOLECALCIFEROL

REACTIONS (3)
  - Neutropenia [Recovering/Resolving]
  - Stenotrophomonas infection [Recovered/Resolved]
  - Off label use [Unknown]

NARRATIVE: CASE EVENT DATE: 20230530
